FAERS Safety Report 21945045 (Version 5)
Quarter: 2024Q1

REPORT INFORMATION
  Report Type: Other
  Country: JP (occurrence: JP)
  Receive Date: 20230202
  Receipt Date: 20240326
  Transmission Date: 20240409
  Serious: Yes (Death, Other)
  Sender: FDA-Public Use
  Company Number: JP-CHUGAI-2022008992

PATIENT
  Age: 68 Year
  Sex: Male

DRUGS (6)
  1. AVASTIN [Suspect]
     Active Substance: BEVACIZUMAB
     Indication: Hepatocellular carcinoma
     Route: 065
     Dates: start: 20210708
  2. AVASTIN [Suspect]
     Active Substance: BEVACIZUMAB
     Route: 065
     Dates: end: 20220303
  3. TECENTRIQ [Suspect]
     Active Substance: ATEZOLIZUMAB
     Indication: Hepatocellular carcinoma
     Route: 065
     Dates: start: 20210708, end: 20220331
  4. TECENTRIQ [Suspect]
     Active Substance: ATEZOLIZUMAB
     Dosage: MOST RECENT DOSE: 31/MAR/2022
     Route: 065
     Dates: end: 20220331
  5. REBAMIPIDE [Concomitant]
     Active Substance: REBAMIPIDE
     Route: 065
  6. LANSOPRAZOLE [Concomitant]
     Active Substance: LANSOPRAZOLE
     Route: 065

REACTIONS (15)
  - Ascites [Not Recovered/Not Resolved]
  - Hypertension [Unknown]
  - Amylase increased [Not Recovered/Not Resolved]
  - Contusion [Unknown]
  - Haemorrhage [Recovered/Resolved]
  - Stomatitis [Recovered/Resolved]
  - Rash [Recovered/Resolved]
  - Fatigue [Unknown]
  - Hepatic function abnormal [Recovered/Resolved]
  - Proteinuria [Unknown]
  - Urinary occult blood [Not Recovered/Not Resolved]
  - Gastric haemorrhage [Unknown]
  - Hepatocellular carcinoma [Fatal]
  - Diarrhoea [Unknown]
  - Pain in extremity [Recovered/Resolved]

NARRATIVE: CASE EVENT DATE: 20210713
